FAERS Safety Report 4850896-4 (Version None)
Quarter: 2005Q4

REPORT INFORMATION
  Report Type: 
  Country: None (occurrence: None)
  Receive Date: 20051212
  Receipt Date: 20051027
  Transmission Date: 20060501
  Serious: Yes (Other)
  Sender: FDA-Public Use
  Company Number: PHHC2-001

PATIENT
  Age: 64 Year
  Sex: Male

DRUGS (4)
  1. NOGITECAN HYDROCHLORIDE [Suspect]
     Dosage: 1.5MG PER DAY
     Route: 042
     Dates: start: 20050829
  2. CISPLATIN [Suspect]
     Dosage: 85MG PER DAY
     Route: 042
     Dates: start: 20050902
  3. FILGRASTIM [Concomitant]
     Dosage: 75UG PER DAY
     Dates: start: 20050903, end: 20051002
  4. GRANISETRON  HCL [Concomitant]
     Dosage: 3MG PER DAY
     Route: 042
     Dates: start: 20050829

REACTIONS (2)
  - HICCUPS [None]
  - NEUTROPHIL COUNT DECREASED [None]
